FAERS Safety Report 14919729 (Version 2)
Quarter: 2018Q2

REPORT INFORMATION
  Report Type: Report from Study
  Country: US (occurrence: US)
  Receive Date: 20180521
  Receipt Date: 20180619
  Transmission Date: 20180711
  Serious: Yes (Hospitalization)
  Sender: FDA-Public Use
  Company Number: US-GLAXOSMITHKLINE-US2018GSK089096

PATIENT
  Age: 72 Year
  Sex: Female
  Weight: 91.7 kg

DRUGS (29)
  1. TYLENOL [Concomitant]
     Active Substance: ACETAMINOPHEN
  2. MORPHINE [Concomitant]
     Active Substance: MORPHINE
  3. ZOFRAN [Concomitant]
     Active Substance: ONDANSETRON HYDROCHLORIDE
  4. ALBUMIN [Concomitant]
     Active Substance: ALBUMIN HUMAN
  5. LYRICA [Concomitant]
     Active Substance: PREGABALIN
  6. LISINOPRIL. [Concomitant]
     Active Substance: LISINOPRIL
  7. BACITRACIN. [Concomitant]
     Active Substance: BACITRACIN
  8. TIMOPTIC [Concomitant]
     Active Substance: TIMOLOL MALEATE
  9. INSULIN GLARGINE [Concomitant]
     Active Substance: INSULIN GLARGINE
  10. ATIVAN [Concomitant]
     Active Substance: LORAZEPAM
  11. FENTANYL. [Concomitant]
     Active Substance: FENTANYL
  12. LOPRESSOR [Concomitant]
     Active Substance: METOPROLOL TARTRATE
  13. SENNA PLUS [Concomitant]
     Active Substance: DOCUSATE SODIUM\SENNOSIDES\SENNOSIDES A AND B
  14. INSULIN REGULAR [Concomitant]
     Active Substance: INSULIN NOS
  15. HYOSCINE HYDROBROMIDE [Suspect]
     Active Substance: SCOPOLAMINE
     Indication: NAUSEA
     Dosage: 1.5 MG, Z
     Dates: start: 20180423, end: 20180426
  16. VITAMIN C [Concomitant]
     Active Substance: ASCORBIC ACID
  17. CALCIUM CARBONATE. [Concomitant]
     Active Substance: CALCIUM CARBONATE
  18. OXYCODONE [Concomitant]
     Active Substance: OXYCODONE
  19. DILAUDID [Concomitant]
     Active Substance: HYDROMORPHONE HYDROCHLORIDE
  20. ANCEF [Concomitant]
     Active Substance: CEFAZOLIN SODIUM
  21. DRAMAMINE [Concomitant]
     Active Substance: DIMENHYDRINATE
  22. ZINC SULFATE [Concomitant]
     Active Substance: ZINC SULFATE\ZINC SULFATE ANHYDROUS
  23. TORADOL [Concomitant]
     Active Substance: KETOROLAC TROMETHAMINE
  24. LASIX [Concomitant]
     Active Substance: FUROSEMIDE
  25. VANCOMYCIN [Concomitant]
     Active Substance: VANCOMYCIN
  26. APRESOLINE HYDROCHLORIDE [Concomitant]
     Active Substance: HYDRALAZINE HYDROCHLORIDE
  27. LIPITOR [Concomitant]
     Active Substance: ATORVASTATIN CALCIUM
  28. HEPARIN [Concomitant]
     Active Substance: HEPARIN SODIUM
  29. VERSED [Concomitant]
     Active Substance: MIDAZOLAM HYDROCHLORIDE

REACTIONS (1)
  - Confusional state [Recovered/Resolved with Sequelae]

NARRATIVE: CASE EVENT DATE: 20180425
